FAERS Safety Report 10872069 (Version 1)
Quarter: 2015Q1

REPORT INFORMATION
  Report Type: Spontaneous
  Country: US (occurrence: US)
  Receive Date: 20150226
  Receipt Date: 20150226
  Transmission Date: 20150721
  Serious: Yes (Hospitalization)
  Sender: FDA-Public Use
  Company Number: US-FRI-1000057855

PATIENT
  Age: 52 Year
  Sex: Female
  Weight: 78.1 kg

DRUGS (2)
  1. METHIMAZOLE. [Suspect]
     Active Substance: METHIMAZOLE
     Indication: HYPERTHYROIDISM
     Route: 048
     Dates: start: 20100824, end: 20100920
  2. SAPHRIS [Suspect]
     Active Substance: ASENAPINE MALEATE
     Indication: PRODUCT USED FOR UNKNOWN INDICATION
     Route: 048
     Dates: start: 20100918, end: 20100920

REACTIONS (5)
  - Acute kidney injury [Unknown]
  - Incorrect route of drug administration [Recovered/Resolved]
  - Hepatic failure [Unknown]
  - Stevens-Johnson syndrome [Unknown]
  - Mental status changes [Unknown]

NARRATIVE: CASE EVENT DATE: 20100918
